FAERS Safety Report 11587247 (Version 1)
Quarter: 2015Q3

REPORT INFORMATION
  Report Type: Spontaneous
  Country: US (occurrence: US)
  Receive Date: 20150916
  Receipt Date: 20150916
  Transmission Date: 20151125
  Serious: No
  Sender: FDA-Public Use
  Company Number: US-ELI_LILLY_AND_COMPANY-US200802000950

PATIENT
  Sex: Female
  Weight: 47.62 kg

DRUGS (3)
  1. ASPIRIN. [Concomitant]
     Active Substance: ASPIRIN
     Dosage: 0.5 D/F, UNK
  2. FORTEO [Suspect]
     Active Substance: TERIPARATIDE
     Dates: start: 20080122
  3. HUMIRA [Concomitant]
     Active Substance: ADALIMUMAB
     Dosage: 0.5 D/F, UNK

REACTIONS (4)
  - Pain [Not Recovered/Not Resolved]
  - Malaise [Not Recovered/Not Resolved]
  - Nausea [Not Recovered/Not Resolved]
  - Bone pain [Not Recovered/Not Resolved]

NARRATIVE: CASE EVENT DATE: 20080122
